FAERS Safety Report 10487718 (Version 2)
Quarter: 2014Q4

REPORT INFORMATION
  Report Type: Report from Study
  Country: BO (occurrence: BO)
  Receive Date: 20141001
  Receipt Date: 20141017
  Transmission Date: 20150528
  Serious: Yes (Death)
  Sender: FDA-Public Use
  Company Number: PHHY2014BO128573

PATIENT
  Age: 44 Year
  Sex: Male

DRUGS (1)
  1. GLIVEC [Suspect]
     Active Substance: IMATINIB MESYLATE
     Indication: CHRONIC MYELOID LEUKAEMIA
     Dosage: 400 MG, A DAY
     Route: 048
     Dates: start: 201204

REACTIONS (11)
  - Thrombocytopenia [Unknown]
  - Bone pain [Unknown]
  - Myeloblast count increased [Unknown]
  - Disseminated intravascular coagulation [Fatal]
  - Anaemia [Unknown]
  - Hypofibrinogenaemia [Unknown]
  - Headache [Unknown]
  - Leukocytosis [Unknown]
  - Activated partial thromboplastin time prolonged [Unknown]
  - Blast crisis in myelogenous leukaemia [Fatal]
  - Prothrombin time prolonged [Unknown]

NARRATIVE: CASE EVENT DATE: 20140915
